FAERS Safety Report 5892905-X (Version None)
Quarter: 2008Q3

REPORT INFORMATION
  Report Type: 
  Country: None (occurrence: None)
  Receive Date: 20080923
  Receipt Date: 20080916
  Transmission Date: 20090109
  Serious: Yes (Other)
  Sender: FDA-Public Use
  Company Number: US-ASTRAZENECA-2007UW08957

PATIENT
  Age: 453 Month
  Sex: Male
  Weight: 92.5 kg

DRUGS (12)
  1. SEROQUEL [Suspect]
     Indication: BIPOLAR DISORDER
     Route: 048
     Dates: start: 20021024, end: 20031205
  2. SEROQUEL [Suspect]
     Indication: PSYCHOTIC DISORDER
     Route: 048
     Dates: start: 20021024, end: 20031205
  3. SEROQUEL [Suspect]
     Indication: DEPRESSION
     Route: 048
     Dates: start: 20021024, end: 20031205
  4. SEROQUEL [Suspect]
     Dosage: 25MG, 200MG
     Route: 048
     Dates: start: 20040929, end: 20050613
  5. SEROQUEL [Suspect]
     Dosage: 25MG, 200MG
     Route: 048
     Dates: start: 20040929, end: 20050613
  6. SEROQUEL [Suspect]
     Dosage: 25MG, 200MG
     Route: 048
     Dates: start: 20040929, end: 20050613
  7. ABILIFY [Concomitant]
     Dates: start: 20080601
  8. LAMICTAL [Concomitant]
     Dates: start: 20040101
  9. CYMBALTA [Concomitant]
  10. LEXAPRO [Concomitant]
     Dates: start: 20040101
  11. XANAX [Concomitant]
  12. TRAZODONE HCL [Concomitant]

REACTIONS (5)
  - ANXIETY [None]
  - GLYCOSURIA [None]
  - INTERMITTENT EXPLOSIVE DISORDER [None]
  - SPINAL FRACTURE [None]
  - TYPE 2 DIABETES MELLITUS [None]
